FAERS Safety Report 4951387-2 (Version None)
Quarter: 2006Q1

REPORT INFORMATION
  Report Type: 
  Country: None (occurrence: None)
  Receive Date: 20060317
  Receipt Date: 20060306
  Transmission Date: 20060701
  Serious: Yes (Life-Threatening, Hospitalization, Disabling)
  Sender: FDA-Public Use
  Company Number: REM_00189_2006

PATIENT
  Age: 56 Year
  Sex: Female

DRUGS (10)
  1. TREPROSTINOL [Suspect]
     Dosage: 42 NG/KG/MIN
     Route: 042
     Dates: start: 20060206
  2. BOSENTAN [Concomitant]
  3. WARFARIN [Concomitant]
  4. SILDENAFIL [Concomitant]
  5. SPIRONOLACTONE [Concomitant]
  6. FUROSEMIDE [Concomitant]
  7. ALLOPURINOL [Concomitant]
  8. CITALOPRAM HYDROCHLORIDE [Concomitant]
  9. PANTOPRAZOLE SODIUM [Concomitant]
  10. ATORVASTATIN CALCIUM [Concomitant]

REACTIONS (3)
  - CEREBROVASCULAR ACCIDENT [None]
  - DEPRESSED LEVEL OF CONSCIOUSNESS [None]
  - INTERNATIONAL NORMALISED RATIO INCREASED [None]
